FAERS Safety Report 24185282 (Version 1)
Quarter: 2024Q3

REPORT INFORMATION
  Report Type: Spontaneous
  Country: US (occurrence: US)
  Receive Date: 20240807
  Receipt Date: 20240807
  Transmission Date: 20241017
  Serious: No
  Sender: GLENMARK
  Company Number: US-GLENMARK PHARMACEUTICALS-2024GMK091963

PATIENT

DRUGS (1)
  1. RYALTRIS [Suspect]
     Active Substance: MOMETASONE FUROATE MONOHYDRATE\OLOPATADINE HYDROCHLORIDE
     Indication: Seasonal allergy
     Dosage: 2 DOSAGE FORM, BID (SPRAY 2 SPRAYS INTO EACH NOSTRIL TWICE A DAY)
     Route: 045
     Dates: start: 20240604, end: 20240625

REACTIONS (1)
  - Drug ineffective [Unknown]
